FAERS Safety Report 5856322-0 (Version None)
Quarter: 2008Q3

REPORT INFORMATION
  Report Type: 
  Country: None (occurrence: None)
  Receive Date: 20080821
  Receipt Date: 20080821
  Transmission Date: 20090109
  Serious: Yes (Other)
  Sender: FDA-Public Use
  Company Number: None

PATIENT
  Age: 40 Year
  Sex: Female
  Weight: 53.5244 kg

DRUGS (1)
  1. LEVAQUIN [Suspect]
     Indication: SINUSITIS
     Dosage: 500 MG  1 DAILY  PO
     Route: 048
     Dates: start: 20080815, end: 20080818

REACTIONS (8)
  - ANXIETY [None]
  - APHASIA [None]
  - ARTHRALGIA [None]
  - DISTURBANCE IN ATTENTION [None]
  - FEELING ABNORMAL [None]
  - MIDDLE INSOMNIA [None]
  - PALPITATIONS [None]
  - TINNITUS [None]
